FAERS Safety Report 13346693 (Version 1)
Quarter: 2017Q1

REPORT INFORMATION
  Report Type: Spontaneous
  Country: PH (occurrence: PH)
  Receive Date: 20170317
  Receipt Date: 20170317
  Transmission Date: 20170428
  Serious: Yes (Death, Life-Threatening, Hospitalization, Other)
  Sender: FDA-Public Use
  Company Number: PH-MYLANLABS-2017M1016770

PATIENT

DRUGS (1)
  1. AZATHIOPRINE. [Suspect]
     Active Substance: AZATHIOPRINE
     Indication: IGA NEPHROPATHY
     Route: 065

REACTIONS (4)
  - Acute on chronic liver failure [Fatal]
  - Hepatitis B [Fatal]
  - Hypotension [Fatal]
  - Haemorrhage [Fatal]
